FAERS Safety Report 6694940-0 (Version None)
Quarter: 2010Q2

REPORT INFORMATION
  Report Type: 
  Country: None (occurrence: None)
  Receive Date: 20100423
  Receipt Date: 20100421
  Transmission Date: 20101027
  Serious: Yes (Congenital Anomaly, Other)
  Sender: FDA-Public Use
  Company Number: CA-B.I. PHARMACEUTICALS,INC./RIDGEFIELD-2010-CN-00152CN

PATIENT
  Sex: Male
  Weight: 3.6 kg

DRUGS (2)
  1. MICARDIS [Suspect]
     Indication: DRUG EXPOSURE DURING PREGNANCY
     Dosage: 80 MG
     Route: 064
  2. CRESTOR [Suspect]
     Indication: DRUG EXPOSURE DURING PREGNANCY
     Dosage: 10 MG
     Route: 064

REACTIONS (10)
  - CLINODACTYLY [None]
  - CONGENITAL ANOMALY [None]
  - CONGENITAL NAIL DISORDER [None]
  - DEVELOPMENTAL DELAY [None]
  - DYSMORPHISM [None]
  - HYPOTONIA NEONATAL [None]
  - IRRITABILITY [None]
  - MATERNAL DRUGS AFFECTING FOETUS [None]
  - MICROCEPHALY [None]
  - SYNDACTYLY [None]
